FAERS Safety Report 15542061 (Version 1)
Quarter: 2018Q4

REPORT INFORMATION
  Report Type: Spontaneous
  Country: JP (occurrence: JP)
  Receive Date: 20181023
  Receipt Date: 20181023
  Transmission Date: 20190205
  Serious: Yes (Death, Other)
  Sender: FDA-Public Use
  Company Number: JP-GILEAD-2018-0369717

PATIENT
  Sex: Male

DRUGS (3)
  1. ZYTIGA [Suspect]
     Active Substance: ABIRATERONE ACETATE
     Indication: PROSTATE CANCER
     Dosage: UNK
     Route: 065
  2. PREDONINE [Suspect]
     Active Substance: PREDNISOLONE
     Indication: STEROID THERAPY
     Dosage: UNK
     Route: 065
  3. VEMLIDY [Suspect]
     Active Substance: TENOFOVIR ALAFENAMIDE FUMARATE
     Indication: HEPATITIS B DNA INCREASED
     Dosage: 25 MG, UNK
     Route: 048
     Dates: start: 20180802

REACTIONS (1)
  - Hepatic failure [Fatal]
